FAERS Safety Report 13964262 (Version 1)
Quarter: 2017Q3

REPORT INFORMATION
  Report Type: Spontaneous
  Country: US (occurrence: None)
  Receive Date: 20170913
  Receipt Date: 20170913
  Transmission Date: 20171128
  Serious: Yes (Other)
  Sender: FDA-Public Use
  Company Number: None

PATIENT
  Age: 32 Year
  Sex: Female
  Weight: 89.6 kg

DRUGS (1)
  1. BUPRENORPHINE/NALOXONE SL TAB 8-2MG [Suspect]
     Active Substance: BUPRENORPHINE\NALOXONE
     Indication: DRUG DEPENDENCE
     Route: 060
     Dates: start: 2016

REACTIONS (6)
  - Pain in extremity [None]
  - Malaise [None]
  - Somnolence [None]
  - Hyperhidrosis [None]
  - Foetal hypokinesia [None]
  - Flushing [None]

NARRATIVE: CASE EVENT DATE: 20170418
